FAERS Safety Report 6887736-8 (Version None)
Quarter: 2010Q3

REPORT INFORMATION
  Report Type: 
  Country: None (occurrence: None)
  Receive Date: 20100730
  Receipt Date: 20100720
  Transmission Date: 20110219
  Serious: Yes (Hospitalization)
  Sender: FDA-Public Use
  Company Number: DE-AMGEN-QUU414218

PATIENT
  Sex: Male
  Weight: 125 kg

DRUGS (2)
  1. ENBREL [Suspect]
     Indication: PSORIASIS
     Route: 058
     Dates: start: 20091022, end: 20091229
  2. ENBREL [Suspect]
     Route: 058
     Dates: start: 20091230

REACTIONS (2)
  - HYPERTENSION [None]
  - IGA NEPHROPATHY [None]
